FAERS Safety Report 4583895-0 (Version None)
Quarter: 2005Q1

REPORT INFORMATION
  Report Type: 
  Country: None (occurrence: None)
  Receive Date: 20050211
  Receipt Date: 20041112
  Transmission Date: 20050727
  Serious: Yes (Other)
  Sender: FDA-Public Use
  Company Number: 2004116827

PATIENT
  Age: 74 Year
  Sex: Male

DRUGS (8)
  1. BEXTRA [Suspect]
     Indication: ARTHRITIS
     Dosage: 10 MG (10 MG, DAILY), ORAL
     Route: 048
     Dates: start: 20041001
  2. SIMVASTATIN [Concomitant]
  3. METOPROLOL SUCCINATE (METOPROLOL SUCCINATE0 [Concomitant]
  4. LANSOPRAZOLE [Interacting]
  5. ASCORBIC ACID [Concomitant]
  6. TOCOPHEROL (TOCOPHEROL) [Concomitant]
  7. ERGOCALCIEROL (ERGOCALCIFERONL) [Concomitant]
  8. MULTIVITAMINS (ASCORBIC ACID, ERGOCALCIEROL, FOLIC ACID, NICOTINAMIDE, [Concomitant]

REACTIONS (4)
  - ANXIETY [None]
  - COLONIC POLYP [None]
  - NECK PAIN [None]
  - TREATMENT NONCOMPLIANCE [None]
